FAERS Safety Report 8758755 (Version 2)
Quarter: 2012Q4

REPORT INFORMATION
  Report Type: Spontaneous
  Country: US (occurrence: None)
  Receive Date: 20120810
  Receipt Date: 20121211
  Transmission Date: 20130627
  Serious: Yes (Death)
  Sender: FDA-Public Use
  Company Number: 2012PROUSA01732

PATIENT
  Age: 67 Year
  Sex: Male
  Weight: 111.1 kg

DRUGS (16)
  1. PROVENGE (SIPULEUCEL-T) SUSPENSION [Suspect]
     Indication: PROSTATE CANCER METASTATIC
     Route: 042
     Dates: start: 20120706, end: 20120706
  2. PROVENGE (SIPULEUCEL-T) SUSPENSION [Suspect]
     Indication: PROSTATE CANCER METASTATIC
     Route: 042
     Dates: start: 20120720, end: 20120720
  3. PLAVIX (CLOPIDOGREL BISULFATE) [Concomitant]
  4. DIGOXIN (DIGOXIN) [Concomitant]
  5. BENAZEPRIL (BENAZEPRIL) [Concomitant]
  6. ASPIRIN (ACETYLSALICYLIC ACID) [Concomitant]
  7. FENOFIBRATE (FENOFIBRATE) [Concomitant]
  8. MELOXICAM (MELOXICAM) [Concomitant]
  9. NITROGLYCERIN (GLYCERYL TRINITRATE) [Concomitant]
  10. PRAVASTATIN NA (PRAVASTATIN SODIUM) [Concomitant]
  11. HYDROCODONE (HYDROCODONE BITARTRATE) [Concomitant]
  12. ALPRAZOLAM (ALPRAZOLAM) [Concomitant]
  13. FUROSEMIDE (FUROSEMIDE) [Concomitant]
  14. MORPHINE SULFATE (MORPHINE SULFATE) [Concomitant]
  15. CARVEDILOL (CARVEDILOL) [Concomitant]
  16. PRAVASTATIN SODIUM (PRAVASTATIN SODIUM) [Concomitant]

REACTIONS (1)
  - Prostate cancer [None]
